FAERS Safety Report 8909861 (Version 2)
Quarter: 2012Q4

REPORT INFORMATION
  Report Type: 
  Country: JP (occurrence: JP)
  Receive Date: 20121115
  Receipt Date: 20121129
  Transmission Date: 20130627
  Serious: Yes (Death)
  Sender: FDA-Public Use
  Company Number: JP-SANOFI-AVENTIS-2012SA081470

PATIENT
  Age: 60 Year
  Sex: Male

DRUGS (7)
  1. ALLEGRA [Suspect]
     Indication: SKIN ERUPTION
     Route: 048
  2. ALLEGRA [Suspect]
     Indication: SKIN DISORDER
     Route: 048
  3. ALLEGRA [Suspect]
     Indication: ITCHING
     Route: 048
  4. ALLEGRA [Suspect]
     Indication: SKIN ERUPTION
     Route: 048
  5. ALLEGRA [Suspect]
     Indication: SKIN DISORDER
     Route: 048
  6. ALLEGRA [Suspect]
     Indication: ITCHING
     Route: 048
  7. ALL OTHER THERAPEUTIC PRODUCTS [Suspect]
     Indication: ADULT T-CELL LYMPHOMA/LEUKEMIA
     Dosage: 70 mg/day at weekly intervals, eight times
     Route: 065

REACTIONS (14)
  - Stevens-Johnson syndrome [Fatal]
  - Rash [Fatal]
  - Skin disorder [Fatal]
  - Pruritus [Fatal]
  - Eye pruritus [Fatal]
  - Toxic epidermal necrolysis [Fatal]
  - Ocular hyperaemia [Fatal]
  - Lip erosion [Fatal]
  - Erythema [Fatal]
  - Skin exfoliation [Fatal]
  - Skin exfoliation [Fatal]
  - Oropharyngeal pain [Fatal]
  - Skin lesion [Fatal]
  - Blister [Fatal]
